FAERS Safety Report 6653746-9 (Version None)
Quarter: 2010Q1

REPORT INFORMATION
  Report Type: 
  Country: None (occurrence: None)
  Receive Date: 20100326
  Receipt Date: 20100323
  Transmission Date: 20100710
  Serious: Yes (Hospitalization)
  Sender: FDA-Public Use
  Company Number: A0851340A

PATIENT
  Age: 61 Year
  Sex: Male
  Weight: 94.1 kg

DRUGS (7)
  1. ALLI [Suspect]
     Indication: WEIGHT LOSS DIET
     Dates: start: 20070101, end: 20091001
  2. CRESTOR [Concomitant]
  3. NIACIN [Concomitant]
  4. BENICAR [Concomitant]
  5. HYDROCHLOROTHIAZIDE [Concomitant]
  6. UNKNOWN [Concomitant]
  7. XENICAL [Concomitant]

REACTIONS (7)
  - ABDOMINAL PAIN LOWER [None]
  - APPENDICECTOMY [None]
  - APPENDICITIS [None]
  - COLONOSCOPY [None]
  - DIVERTICULITIS [None]
  - LAPAROSCOPIC SURGERY [None]
  - WHITE BLOOD CELL COUNT INCREASED [None]
